FAERS Safety Report 8895064 (Version 1)
Quarter: 2012Q4

REPORT INFORMATION
  Report Type: 
  Country: US (occurrence: US)
  Receive Date: 20121107
  Receipt Date: 20121107
  Transmission Date: 20130627
  Serious: No
  Sender: FDA-Public Use
  Company Number: US-AMGEN-USASP2011059391

PATIENT
  Age: 59 Year
  Sex: Female

DRUGS (2)
  1. ENBREL [Suspect]
     Indication: RHEUMATOID ARTHRITIS
     Dosage: 50 mg, qwk
     Dates: start: 20060101
  2. ENBREL [Suspect]
     Dosage: 50 mg, qwk

REACTIONS (7)
  - Joint stiffness [Unknown]
  - Pain [Unknown]
  - Arthralgia [Unknown]
  - Bronchitis [Unknown]
  - Infection [Unknown]
  - Fungal skin infection [Not Recovered/Not Resolved]
  - Urinary tract infection [Recovered/Resolved]
